FAERS Safety Report 8723100 (Version 3)
Quarter: 2012Q4

REPORT INFORMATION
  Report Type: 
  Country: NL (occurrence: NL)
  Receive Date: 20120814
  Receipt Date: 20121128
  Transmission Date: 20130627
  Serious: Yes (Death, Hospitalization, Other)
  Sender: FDA-Public Use
  Company Number: NL-PFIZER INC-2012194385

PATIENT
  Age: 71 Year
  Sex: Male

DRUGS (10)
  1. ATORVASTATIN CALCIUM [Suspect]
     Dosage: UNK
  2. AVODART [Concomitant]
     Indication: ENLARGED PROSTATE
     Dosage: 0.5 mg
  3. SELOKEEN [Concomitant]
     Dosage: 200 mg
  4. MONO-CEDOCARD [Concomitant]
     Dosage: 100 mg
  5. ASCAL [Concomitant]
     Dosage: UNK
  6. OMEPRAZOL [Concomitant]
     Dosage: 20 mg
  7. SPIRIVA [Concomitant]
     Indication: COPD
     Dosage: 18 ug
  8. LASIX [Concomitant]
     Dosage: 40 mg
  9. SYMBICORT [Concomitant]
     Indication: COPD
     Dosage: UNK
  10. OMNIC [Concomitant]
     Indication: ENLARGED PROSTATE
     Dosage: UNK

REACTIONS (8)
  - Cardiac tamponade [Fatal]
  - Acute myocardial infarction [Fatal]
  - Fall [Unknown]
  - Patella fracture [Unknown]
  - Ankle fracture [Unknown]
  - Hypotension [Unknown]
  - Bradycardia [Unknown]
  - Dizziness [Unknown]
